FAERS Safety Report 21066888 (Version 1)
Quarter: 2022Q3

REPORT INFORMATION
  Report Type: Other
  Country: GB (occurrence: GB)
  Receive Date: 20220712
  Receipt Date: 20220712
  Transmission Date: 20221027
  Serious: No
  Sender: FDA-Public Use
  Company Number: GB-SUN PHARMACEUTICAL INDUSTRIES LTD-2022RR-341963

PATIENT

DRUGS (14)
  1. SERTRALINE [Suspect]
     Active Substance: SERTRALINE HYDROCHLORIDE
     Indication: Product used for unknown indication
     Dosage: 100 MILLIGRAM, QD
     Route: 048
  2. LANSOPRAZOLE [Suspect]
     Active Substance: LANSOPRAZOLE
     Indication: Product used for unknown indication
     Dosage: 30 MILLIGRAM, QD (30 MILLIGRAM, DAILY, ONE TO BE TAKEN TWICE DAILY OR AS DIRECTED BY SPECIALIST) (GA
     Route: 048
  3. AMITRIPTYLINE [Suspect]
     Active Substance: AMITRIPTYLINE
     Indication: Product used for unknown indication
     Dosage: 25 MILLIGRAM, QD (25 MILLIGRAM, DAILY, ONE TO BE TAKEN EACH NIGHT)
     Route: 048
  4. AMITRIPTYLINE [Suspect]
     Active Substance: AMITRIPTYLINE
     Dosage: 50 MILLIGRAM, QD (50 MILLIGRAM, DAILY, ONE TO BE TAKEN EACH NIGHT 1.5MG)
     Route: 048
  5. AMLODIPINE [Suspect]
     Active Substance: AMLODIPINE BESYLATE
     Indication: Product used for unknown indication
     Dosage: 5 MILLIGRAM, QD
     Route: 048
  6. ATORVASTATIN [Suspect]
     Active Substance: ATORVASTATIN
     Indication: Product used for unknown indication
     Dosage: 40 MILLIGRAM, QD
     Route: 048
  7. CALCEOS [Suspect]
     Active Substance: CALCIUM CARBONATE\CHOLECALCIFEROL
     Indication: Product used for unknown indication
     Dosage: 1 DOSAGE FORM, BID, UNK (500MG/400UNIT CHEWABLE TABLETS)
     Route: 048
  8. CITALOPRAM [Suspect]
     Active Substance: CITALOPRAM HYDROBROMIDE
     Indication: Product used for unknown indication
     Dosage: 20 MILLIGRAM, QD
     Route: 048
  9. INDAPAMIDE [Suspect]
     Active Substance: INDAPAMIDE
     Indication: Product used for unknown indication
     Dosage: 1.5 MILLIGRAM, QD (1.5 MILLIGRAM, DAILY, TAKE ONE EACH MORNING)
     Route: 048
  10. LOSARTAN [Suspect]
     Active Substance: LOSARTAN
     Indication: Product used for unknown indication
     Dosage: 50 MILLIGRAM, QD (50 MILLIGRAM, DAILY, TAKE ONE EVERY MORNING)
     Route: 048
  11. LOPERAMIDE [Concomitant]
     Active Substance: LOPERAMIDE
     Indication: Product used for unknown indication
     Dosage: 2 GRAM, PRN
     Route: 048
  12. MEBEVERINE [Concomitant]
     Active Substance: MEBEVERINE
     Indication: Product used for unknown indication
     Dosage: 135 MILLIGRAM, QID (TAKE ON THREE TIMES A DAY)
     Route: 048
  13. MIRTAZAPINE [Concomitant]
     Active Substance: MIRTAZAPINE
     Indication: Product used for unknown indication
     Dosage: 30 MILLIGRAM, QD (ONE EVERY DAY AT NIGHT)
     Route: 065
  14. PROPANOL (PROPRANOLOL HYDROCHLORIDE) [Concomitant]
     Active Substance: PROPRANOLOL HYDROCHLORIDE
     Indication: Product used for unknown indication
     Dosage: 40 MILLIGRAM, QD
     Route: 048

REACTIONS (6)
  - Dizziness [Unknown]
  - Renal pain [Unknown]
  - Malaise [Unknown]
  - Product dose omission issue [Unknown]
  - Product dispensing error [Unknown]
  - Incorrect dose administered [Unknown]
